FAERS Safety Report 22005787 (Version 6)
Quarter: 2023Q2

REPORT INFORMATION
  Report Type: Report from Study
  Country: JP (occurrence: JP)
  Receive Date: 20230217
  Receipt Date: 20230404
  Transmission Date: 20230721
  Serious: Yes (Hospitalization)
  Sender: FDA-Public Use
  Company Number: JP-JNJFOC-20230215155

PATIENT
  Age: 42 Year
  Sex: Male
  Weight: 69.1 kg

DRUGS (25)
  1. PLACEBO [Suspect]
     Active Substance: UNSPECIFIED INGREDIENT
     Indication: Crohn^s disease
     Route: 065
     Dates: start: 20221011
  2. MESALAMINE [Concomitant]
     Active Substance: MESALAMINE
     Indication: Crohn^s disease
     Route: 048
     Dates: start: 20160420
  3. LOXOPROFEN SODIUM DIHYDRATE [Concomitant]
     Active Substance: LOXOPROFEN SODIUM DIHYDRATE
     Indication: Abdominal pain
     Route: 048
     Dates: start: 20200225, end: 20230222
  4. LOXOPROFEN SODIUM DIHYDRATE [Concomitant]
     Active Substance: LOXOPROFEN SODIUM DIHYDRATE
     Indication: Procedural pain
     Route: 048
     Dates: start: 20230223, end: 20230225
  5. LOXOPROFEN SODIUM DIHYDRATE [Concomitant]
     Active Substance: LOXOPROFEN SODIUM DIHYDRATE
     Dates: start: 20230226, end: 20230226
  6. HERBALS [Concomitant]
     Active Substance: HERBALS
     Indication: Nasopharyngitis
     Route: 048
     Dates: start: 20161116
  7. BENFOTIAMINE\CYANOCOBALAMIN\PYRIDOXINE HYDROCHLORIDE [Concomitant]
     Active Substance: BENFOTIAMINE\CYANOCOBALAMIN\PYRIDOXINE HYDROCHLORIDE
     Indication: Crohn^s disease
     Route: 048
     Dates: start: 20190515, end: 20230131
  8. TEPRENONE [Concomitant]
     Active Substance: TEPRENONE
     Indication: Prophylaxis
     Route: 048
     Dates: start: 20171213
  9. ASCORBIC ACID;CALCIUM PANTOTHENATE [Concomitant]
     Indication: Crohn^s disease
     Route: 048
     Dates: start: 20190515, end: 20230131
  10. ADAPALENE [Concomitant]
     Active Substance: ADAPALENE
     Indication: Rash
     Dosage: 1 OTHER
     Route: 062
     Dates: start: 20221108, end: 20230310
  11. NADIFLOXACIN [Concomitant]
     Active Substance: NADIFLOXACIN
     Indication: Rash
     Dosage: 1 OTHER
     Route: 062
     Dates: start: 20221108, end: 20230310
  12. BUDESONIDE [Concomitant]
     Active Substance: BUDESONIDE
     Indication: Crohn^s disease
     Route: 048
     Dates: start: 20230113, end: 20230202
  13. BUDESONIDE [Concomitant]
     Active Substance: BUDESONIDE
     Route: 048
     Dates: start: 20230203, end: 20230205
  14. BUDESONIDE [Concomitant]
     Active Substance: BUDESONIDE
     Route: 048
     Dates: start: 20230206, end: 20230216
  15. BUDESONIDE [Concomitant]
     Active Substance: BUDESONIDE
     Route: 048
     Dates: start: 20220927, end: 20230112
  16. OMEPRAZOLE SODIUM [Concomitant]
     Active Substance: OMEPRAZOLE SODIUM
     Indication: Prophylaxis
     Route: 042
     Dates: start: 20230206, end: 20230206
  17. OMEPRAZOLE SODIUM [Concomitant]
     Active Substance: OMEPRAZOLE SODIUM
     Route: 042
     Dates: start: 20230207, end: 20230220
  18. ESOMEPRAZOLE MAGNESIUM [Concomitant]
     Active Substance: ESOMEPRAZOLE MAGNESIUM
     Indication: Gastritis
     Route: 048
     Dates: start: 20230223, end: 20230308
  19. HYDROCORTISONE [Concomitant]
     Active Substance: HYDROCORTISONE
     Route: 042
     Dates: start: 20230218, end: 20230218
  20. ENOXAPARIN [Concomitant]
     Active Substance: ENOXAPARIN
     Indication: Thrombosis prophylaxis
     Dosage: ^2000^
     Route: 058
     Dates: start: 20230218, end: 20230218
  21. ENOXAPARIN [Concomitant]
     Active Substance: ENOXAPARIN
     Dosage: ^4000^
     Route: 058
     Dates: start: 20230219, end: 20230224
  22. METOCLOPRAMIDE [Concomitant]
     Active Substance: METOCLOPRAMIDE
     Indication: Nausea
     Dates: start: 20230219, end: 20230222
  23. LEVOBUPIVACAINE [Concomitant]
     Active Substance: LEVOBUPIVACAINE
     Indication: Procedural pain
     Dates: start: 20230217, end: 20230221
  24. PANTHENOLS [Concomitant]
     Indication: Post procedural complication
     Dates: start: 20230222, end: 20230222
  25. PANTHENOLS [Concomitant]
     Dates: start: 20230223, end: 20230225

REACTIONS (3)
  - Crohn^s disease [Recovered/Resolved]
  - Postoperative wound infection [Recovered/Resolved]
  - Vascular device infection [Recovered/Resolved]

NARRATIVE: CASE EVENT DATE: 20230206
